FAERS Safety Report 19207230 (Version 1)
Quarter: 2021Q2

REPORT INFORMATION
  Report Type: Report from Study
  Country: DE (occurrence: DE)
  Receive Date: 20210501
  Receipt Date: 20210501
  Transmission Date: 20210717
  Serious: Yes (Death, Life-Threatening, Hospitalization, Other)
  Sender: FDA-Public Use
  Company Number: DE-TEVA-2021-DE-1905439

PATIENT
  Age: 9 Year
  Sex: Male
  Weight: 29.3 kg

DRUGS (24)
  1. JONOSTERIL                         /00351401/ [Concomitant]
     Active Substance: CALCIUM ACETATE\MAGNESIUM ACETATE\POTASSIUM ACETATE\SODIUM ACETATE\SODIUM CHLORI
     Indication: FLUID REPLACEMENT
     Dosage: CONTINUOUS (1 LIT)
     Route: 042
     Dates: start: 20190304, end: 20190307
  2. PIPERACILLIN/TAZOBACTAM [Concomitant]
     Active Substance: PIPERACILLIN SODIUM\TAZOBACTAM SODIUM
     Indication: FEBRILE NEUTROPENIA
     Dosage: 3.3 GRAM, TID:UNIT DOSE:9.9GRAM
     Route: 042
     Dates: start: 20190304, end: 20190312
  3. METAMIZOLE [Concomitant]
     Active Substance: METAMIZOLE
     Dosage: 500 MG, 2 IN 1 D:UNIT DOSE:1000MILLIGRAM
     Route: 048
     Dates: start: 20190304, end: 20190304
  4. ZOFRAN [Concomitant]
     Active Substance: ONDANSETRON HYDROCHLORIDE
     Dosage: 6 MG, AS REQUIRED
     Route: 048
     Dates: start: 20190116, end: 20190303
  5. MORPHINE [Concomitant]
     Active Substance: MORPHINE
     Indication: BONE PAIN
     Dosage: 1 MG, 2 IN 1 D:UNIT DOSE:2MILLIGRAM
     Route: 042
     Dates: start: 20190304, end: 20190307
  6. KALINOR                            /00031402/ [Concomitant]
     Active Substance: POTASSIUM CHLORIDE
     Indication: MINERAL SUPPLEMENTATION
     Dosage: 40 MMOL, AS REQUIRED
     Route: 048
     Dates: start: 20190126
  7. PANTOPRAZOLE [Concomitant]
     Active Substance: PANTOPRAZOLE
     Indication: PROPHYLAXIS
     Dosage: 20 MILLIGRAM DAILY; 20 MG, 1 IN 1 D
     Route: 048
     Dates: start: 20180406
  8. ETOPOSIDE. [Suspect]
     Active Substance: ETOPOSIDE
     Indication: NEOPLASM MALIGNANT
     Dosage: 100 MILLIGRAM/SQ. METER, ONCE TOTAL:UNIT DOSE:100MG/M2
     Route: 042
     Dates: start: 20190309, end: 20190309
  9. VERGENTAN [Concomitant]
     Active Substance: ALIZAPRIDE HYDROCHLORIDE
     Indication: NAUSEA
     Dosage: 50 MG, AS REQUIRED
     Route: 030
     Dates: start: 20190308, end: 20190310
  10. TRIMETHOPRIM SULFAMETHOXAZOLE [Concomitant]
     Active Substance: SULFAMETHOXAZOLE\TRIMETHOPRIM
     Indication: ANTIBIOTIC PROPHYLAXIS
     Dosage: 160 MG, 2 IN 1 WK:UNIT DOSE:320MILLIGRAM
     Route: 048
     Dates: start: 20180406, end: 20190324
  11. CYTARABINE. [Suspect]
     Active Substance: CYTARABINE
     Indication: ACUTE LYMPHOCYTIC LEUKAEMIA
     Dosage: UNK
     Route: 065
     Dates: start: 20180404, end: 20181207
  12. ZOFRAN [Concomitant]
     Active Substance: ONDANSETRON HYDROCHLORIDE
     Indication: NAUSEA
     Dosage: 1 MILLIGRAM, BID:UNIT DOSE:2MILLIGRAM
     Route: 042
     Dates: start: 20190304
  13. VOMEX A [Concomitant]
     Active Substance: DIMENHYDRINATE
     Indication: NAUSEA
     Dosage: 4 ML, AS REQUIRED
     Route: 042
     Dates: start: 20190310, end: 20190311
  14. CYTARABINE. [Suspect]
     Active Substance: CYTARABINE
     Dosage: 108 MILLIGRAM DAILY;  QD
     Route: 042
     Dates: start: 20190309, end: 20190315
  15. AMBISOME [Concomitant]
     Active Substance: AMPHOTERICIN B
     Indication: PROPHYLAXIS
     Dosage: 32 MG, EVERY OTHER DAY
     Route: 042
     Dates: start: 20181229, end: 20190325
  16. CLEMASTINE [Concomitant]
     Active Substance: CLEMASTINE
     Indication: PREMEDICATION
     Dosage: 2 MG, AS REQUIRED
     Route: 042
     Dates: start: 20190305, end: 20190309
  17. ACICLOVIR [Concomitant]
     Active Substance: ACYCLOVIR
     Indication: PROPHYLAXIS
     Dosage: 600 MG, 3 IN 1 D:UNIT DOSE:1800MILLIGRAM
     Route: 048
     Dates: start: 20181228
  18. AMPHOTERICIN B. [Concomitant]
     Active Substance: AMPHOTERICIN B
     Indication: ANTIFUNGAL PROPHYLAXIS
     Dosage: UNK
     Route: 048
  19. MACROGOL [Concomitant]
     Active Substance: POLYETHYLENE GLYCOLS
     Indication: CONSTIPATION
     Dosage: 1 SACHET,AS REQUIRED:UNIT DOSE:1DOSAGEFORM
     Route: 048
     Dates: start: 20190305, end: 20190326
  20. PEGASPARGASE [Suspect]
     Active Substance: PEGASPARGASE
     Indication: NEOPLASM MALIGNANT
     Dosage: 2500 IU/M2, ONCE
     Route: 042
     Dates: start: 20190309, end: 20190309
  21. PIPERACILLIN/TAZOBACTAM [Concomitant]
     Active Substance: PIPERACILLIN SODIUM\TAZOBACTAM SODIUM
     Indication: ANTIBIOTIC PROPHYLAXIS
  22. TEICOPLANIN [Concomitant]
     Active Substance: TEICOPLANIN
     Indication: ANTIBIOTIC PROPHYLAXIS
     Dosage: 450 MG, EVERY OTHER DAY
     Route: 042
     Dates: start: 20181219
  23. METAMIZOLE [Concomitant]
     Active Substance: METAMIZOLE
     Indication: PRODUCT USED FOR UNKNOWN INDICATION
     Dosage: 500 MG, 4 IN 1 DUNIT DOSE:2000MILLIGRAM
     Route: 048
     Dates: start: 20190305, end: 20190311
  24. SODIUM PICOSULFATE [Concomitant]
     Active Substance: SODIUM PICOSULFATE
     Indication: CONSTIPATION
     Dosage: 10 DROP,AS REQUIRED:UNIT DOSE:10DOSAGEFORM
     Route: 048
     Dates: start: 20190305, end: 20190326

REACTIONS (7)
  - Multiple organ dysfunction syndrome [Fatal]
  - Neoplasm progression [Fatal]
  - Sepsis [Fatal]
  - Pyrexia [Fatal]
  - Abdominal pain [Fatal]
  - Hepatosplenomegaly [Unknown]
  - Febrile neutropenia [Recovered/Resolved]

NARRATIVE: CASE EVENT DATE: 20190320
